FAERS Safety Report 6235726-0 (Version None)
Quarter: 2009Q2

REPORT INFORMATION
  Report Type: 
  Country: None (occurrence: None)
  Receive Date: 20090619
  Receipt Date: 20080320
  Transmission Date: 20091009
  Serious: Yes (Other)
  Sender: FDA-Public Use
  Company Number: US-ASTRAZENECA-2008UW01181

PATIENT
  Age: 586 Month
  Sex: Female
  Weight: 98.4 kg

DRUGS (13)
  1. SEROQUEL [Suspect]
     Indication: ANXIETY
     Dosage: 100 MG - 200 MG
     Route: 048
     Dates: start: 20050101, end: 20071201
  2. SEROQUEL [Suspect]
     Indication: DEPRESSION
     Dosage: 100 MG - 200 MG
     Route: 048
     Dates: start: 20050101, end: 20071201
  3. SEROQUEL [Suspect]
     Indication: BIPOLAR DISORDER
     Dosage: 100 MG - 200 MG
     Route: 048
     Dates: start: 20050101, end: 20071201
  4. SEROQUEL [Suspect]
     Dosage: 25 - 300 MG
     Route: 048
     Dates: start: 20060803
  5. SEROQUEL [Suspect]
     Dosage: 25 - 300 MG
     Route: 048
     Dates: start: 20060803
  6. SEROQUEL [Suspect]
     Dosage: 25 - 300 MG
     Route: 048
     Dates: start: 20060803
  7. GEODON [Concomitant]
     Dosage: 80 MG TWO TABLETS AT NIGHT
     Dates: start: 20070130
  8. PAXIL [Concomitant]
     Dates: start: 20070220
  9. ABILIFY [Concomitant]
     Dates: start: 20070313
  10. TRAZODONE HCL [Concomitant]
     Dosage: 50 - 100 MG
     Dates: start: 20051221
  11. ZOLOFT [Concomitant]
     Dates: start: 20051229
  12. PREVACID [Concomitant]
     Dates: start: 20080609
  13. HYDROCHLOROTHIAZIDE [Concomitant]
     Dates: start: 20080413

REACTIONS (4)
  - DIABETES MELLITUS [None]
  - HYPERGLYCAEMIA [None]
  - METABOLIC SYNDROME [None]
  - TYPE 2 DIABETES MELLITUS [None]
